FAERS Safety Report 9299061 (Version 1)
Quarter: 2013Q2

REPORT INFORMATION
  Report Type: Spontaneous
  Country: US (occurrence: US)
  Receive Date: 20130520
  Receipt Date: 20130520
  Transmission Date: 20140414
  Serious: No
  Sender: FDA-Public Use
  Company Number: US-TEVA-404762USA

PATIENT
  Sex: Female

DRUGS (2)
  1. PROAIR HFA [Suspect]
     Indication: BRONCHOSPASM
  2. AUGMENTIN [Concomitant]

REACTIONS (2)
  - Dyspepsia [Unknown]
  - Cough [Unknown]
